FAERS Safety Report 8213042-5 (Version None)
Quarter: 2012Q1

REPORT INFORMATION
  Report Type: 
  Country: None (occurrence: None)
  Receive Date: 20120315
  Receipt Date: 20120307
  Transmission Date: 20120608
  Serious: Yes (Hospitalization)
  Sender: FDA-Public Use
  Company Number: US-JNJFOC-20100707849

PATIENT
  Sex: Male

DRUGS (27)
  1. TYLENOL [Concomitant]
     Indication: NECK PAIN
     Route: 048
     Dates: start: 20000101
  2. LUPRON [Concomitant]
     Indication: HORMONE THERAPY
     Route: 030
     Dates: start: 20091229
  3. NORVASC [Concomitant]
     Indication: HYPERTENSION
     Route: 048
     Dates: start: 20000101
  4. SULINDAC [Concomitant]
     Indication: ARTHRALGIA
     Route: 048
     Dates: start: 20000101
  5. TYLENOL [Concomitant]
     Indication: SLEEP DISORDER THERAPY
     Route: 048
     Dates: start: 20000101
  6. TYLENOL [Concomitant]
     Route: 048
     Dates: start: 20000131
  7. ABIRATERONE ACETATE [Suspect]
     Indication: PROSTATE CANCER METASTATIC
     Route: 048
     Dates: start: 20091229
  8. GLIPIZIDE [Concomitant]
     Indication: DIABETES MELLITUS
     Route: 048
     Dates: start: 20030101
  9. TYLENOL [Concomitant]
     Route: 048
     Dates: start: 20000131
  10. ALLEGRA [Concomitant]
     Indication: SEASONAL ALLERGY
     Route: 048
     Dates: start: 20030101
  11. LISINOPRIL [Concomitant]
     Indication: HYPERTENSION
     Route: 048
     Dates: start: 20000101
  12. NOVOLOG [Concomitant]
     Indication: DIABETES MELLITUS
     Dosage: 4 UNITS + 24 UNITS
     Route: 058
     Dates: start: 20100518
  13. PREDNISONE TAB [Suspect]
     Indication: PROSTATE CANCER METASTATIC
     Route: 048
     Dates: start: 20091229
  14. CALCIUM+VITAMIN D [Concomitant]
     Indication: NUTRITIONAL SUPPORT
     Route: 048
     Dates: start: 20060101
  15. LOPRESSOR [Concomitant]
     Indication: HYPERTENSION
     Route: 048
     Dates: start: 20000101
  16. TYLENOL [Concomitant]
     Indication: BACK PAIN
     Route: 048
     Dates: start: 20000101
  17. ABIRATERONE ACETATE [Suspect]
     Route: 048
  18. JUICE PLUS [Concomitant]
     Indication: NUTRITIONAL SUPPORT
     Route: 048
     Dates: start: 20000101
  19. LIPITOR [Concomitant]
     Indication: HYPERCHOLESTEROLAEMIA
     Dosage: EVERY NIGHT AT BED TIME
     Route: 048
     Dates: start: 20000101
  20. METFORMIN HCL [Concomitant]
     Indication: DIABETES MELLITUS
     Route: 048
     Dates: start: 20020101
  21. CALCIUM+ D. [Concomitant]
     Indication: BONE DISORDER
     Dosage: 2000 UNITS
     Route: 048
     Dates: start: 20090201
  22. ASPIRIN [Concomitant]
     Indication: CARDIOVASCULAR EVENT PROPHYLAXIS
     Route: 048
     Dates: start: 20100629, end: 20100718
  23. TYLENOL [Concomitant]
     Route: 048
     Dates: start: 20000131
  24. VITAMIN D [Concomitant]
     Dosage: 2000 UNITS
     Route: 065
  25. PARACETAMOL/DIPHENHYDRAMINE [Concomitant]
     Indication: FATIGUE
     Route: 048
     Dates: start: 20100131
  26. MAGNESIUM [Concomitant]
     Indication: MEDICAL DIET
     Route: 048
     Dates: start: 20090921
  27. ACIDOPHILUS [Concomitant]
     Indication: NUTRITIONAL SUPPORT
     Route: 048
     Dates: start: 20090301

REACTIONS (2)
  - DEEP VEIN THROMBOSIS [None]
  - PULMONARY EMBOLISM [None]
